FAERS Safety Report 19908092 (Version 1)
Quarter: 2021Q4

REPORT INFORMATION
  Report Type: Spontaneous
  Country: US (occurrence: US)
  Receive Date: 20211001
  Receipt Date: 20211001
  Transmission Date: 20220303
  Serious: No
  Sender: FDA-Public Use
  Company Number: US-BAYER-2021A222526

PATIENT
  Age: 58 Year
  Sex: Male

DRUGS (3)
  1. ALEVE [Suspect]
     Active Substance: NAPROXEN SODIUM
     Indication: Pain
     Dosage: 4 DF
     Route: 048
     Dates: start: 20210929, end: 20210930
  2. PHENYTOIN SOD. [Concomitant]
     Route: 065
  3. CENTRUM SILVER [ASCORBIC ACID;CALCIUM;MINERALS NOS;RETINOL;TOCOPHE [Concomitant]

REACTIONS (2)
  - Expired product administered [Unknown]
  - Limb discomfort [Not Recovered/Not Resolved]

NARRATIVE: CASE EVENT DATE: 20210929
